FAERS Safety Report 11274998 (Version 2)
Quarter: 2015Q3

REPORT INFORMATION
  Report Type: Spontaneous
  Country: CA (occurrence: CA)
  Receive Date: 20150716
  Receipt Date: 20150908
  Transmission Date: 20151125
  Serious: Yes (Hospitalization, Other)
  Sender: FDA-Public Use
  Company Number: CA-ROCHE-1607300

PATIENT
  Age: 59 Year
  Sex: Female

DRUGS (14)
  1. SINGULAIR [Concomitant]
     Active Substance: MONTELUKAST SODIUM
  2. SYMBICORT [Concomitant]
     Active Substance: BUDESONIDE\FORMOTEROL FUMARATE DIHYDRATE
     Dosage: 2 TO 4 TIMES PER DAY
     Route: 065
  3. PULMICORT TURBUHALER [Concomitant]
     Active Substance: BUDESONIDE
     Dosage: 3 PUFFERS PER DAY
     Route: 065
  4. EFFEXOR [Concomitant]
     Active Substance: VENLAFAXINE HYDROCHLORIDE
  5. UNIPHYL [Concomitant]
     Active Substance: THEOPHYLLINE ANHYDROUS
  6. PREDNISONE. [Concomitant]
     Active Substance: PREDNISONE
     Dosage: FRO 6 DAYS
     Route: 065
     Dates: start: 20140722
  7. AVAMYS [Concomitant]
     Active Substance: FLUTICASONE FUROATE
  8. VENTOLIN [Concomitant]
     Active Substance: ALBUTEROL SULFATE
     Route: 065
  9. PREDNISONE. [Concomitant]
     Active Substance: PREDNISONE
     Dosage: DECREASING DOSE
     Route: 065
  10. PREDNISONE. [Concomitant]
     Active Substance: PREDNISONE
     Dosage: FOR 6 DAYS
     Route: 065
  11. XOLAIR [Suspect]
     Active Substance: OMALIZUMAB
     Indication: ASTHMA
     Route: 058
     Dates: start: 20111031
  12. ALVESCO [Concomitant]
     Active Substance: CICLESONIDE
  13. VENTOLIN [Concomitant]
     Active Substance: ALBUTEROL SULFATE
     Dosage: 4 TO 6 PUFFERS PER DAY
     Route: 065
  14. PREDNISONE. [Concomitant]
     Active Substance: PREDNISONE
     Dosage: 50 MG FOR 6 DAYS FOLLOWED BY 25 MG FOR 06 DAYS ENDING ON 20 OCT 2014
     Route: 065
     Dates: start: 201410, end: 20141020

REACTIONS (16)
  - Wheezing [Unknown]
  - Viral infection [Unknown]
  - Erythema [Unknown]
  - Pruritus [Recovering/Resolving]
  - Renal failure [Unknown]
  - Haemoptysis [Unknown]
  - Nasopharyngitis [Unknown]
  - Pyrexia [Unknown]
  - Muscle spasms [Unknown]
  - Diarrhoea [Unknown]
  - Weight decreased [Unknown]
  - Blood pressure systolic increased [Unknown]
  - Respiratory tract inflammation [Unknown]
  - Bronchitis [Recovering/Resolving]
  - Malaise [Unknown]
  - Asthma [Unknown]

NARRATIVE: CASE EVENT DATE: 20131023
